FAERS Safety Report 7228098-6 (Version None)
Quarter: 2011Q1

REPORT INFORMATION
  Report Type: 
  Country: None (occurrence: None)
  Receive Date: 20110106
  Receipt Date: 20101202
  Transmission Date: 20110831
  Serious: Yes (Other)
  Sender: FDA-Public Use
  Company Number: ACO_20747_2010

PATIENT
  Age: 50 Year
  Sex: Female

DRUGS (7)
  1. CALCIUM [Concomitant]
  2. VITAMIN B12 [Concomitant]
  3. COPAXONE [Concomitant]
  4. AMPYRA [Suspect]
     Indication: PRODUCT USED FOR UNKNOWN INDICATION
     Dosage: 10MG, Q 12 HRS, ORAL
     Route: 048
     Dates: start: 20101005
  5. ESTROGEN NOS [Concomitant]
  6. FISH OIL [Concomitant]
  7. VITAMIN D [Concomitant]

REACTIONS (4)
  - HEAD INJURY [None]
  - FALL [None]
  - LOSS OF CONSCIOUSNESS [None]
  - CONTUSION [None]
